FAERS Safety Report 4818432-6 (Version None)
Quarter: 2005Q4

REPORT INFORMATION
  Report Type: 
  Country: None (occurrence: None)
  Receive Date: 20051031
  Receipt Date: 20051019
  Transmission Date: 20060501
  Serious: Yes (Other)
  Sender: FDA-Public Use
  Company Number: 2005145300

PATIENT
  Age: 68 Year
  Sex: Female

DRUGS (3)
  1. ZOLOFT [Suspect]
     Indication: ILL-DEFINED DISORDER
  2. ARICEPT [Suspect]
     Indication: DEMENTIA
     Dosage: 10 MG (1 IN 1 D)
     Dates: start: 20050101
  3. CARBIDOPA (CARBIDOPA) [Concomitant]

REACTIONS (3)
  - DEMENTIA [None]
  - PARKINSON'S DISEASE [None]
  - VOMITING [None]
